FAERS Safety Report 11197779 (Version 1)
Quarter: 2015Q2

REPORT INFORMATION
  Report Type: Spontaneous
  Country: US (occurrence: US)
  Receive Date: 20150617
  Receipt Date: 20150617
  Transmission Date: 20150821
  Serious: No
  Sender: FDA-Public Use
  Company Number: US-TAKEDA-2014TUS007545

PATIENT
  Sex: Female
  Weight: 113.38 kg

DRUGS (5)
  1. UNKNOWN BP PILL [Concomitant]
     Indication: HYPERTENSION
     Dosage: UNK
  2. ULORIC [Suspect]
     Active Substance: FEBUXOSTAT
     Indication: GOUT
  3. UNKNOWN INSULIN [Concomitant]
     Indication: DIABETES MELLITUS
     Dosage: UNK
  4. ULORIC [Suspect]
     Active Substance: FEBUXOSTAT
     Indication: HYPERURICAEMIA
     Dosage: 40 MG, QD
     Route: 048
     Dates: start: 20140813
  5. UNKNOWN CHOLESTEROL PILL [Concomitant]
     Indication: BLOOD CHOLESTEROL INCREASED
     Dosage: UNK

REACTIONS (1)
  - Insomnia [Unknown]
